FAERS Safety Report 9882966 (Version 1)
Quarter: 2014Q1

REPORT INFORMATION
  Report Type: Spontaneous
  Country: FR (occurrence: None)
  Receive Date: 20140204
  Receipt Date: 20140204
  Transmission Date: 20141002
  Serious: Yes (Other)
  Sender: FDA-Public Use
  Company Number: FK201400287

PATIENT
  Age: 24 Year
  Sex: Female

DRUGS (3)
  1. PROPOFOL [Suspect]
     Indication: SEDATION
     Dosage: 50 TO 150MG/H, INTRAVENOUS (NOT OTHERWISE SPECIFIED)
  2. ROCURONIUM BROMIDE [Concomitant]
  3. MIDAZOLAM (MIDAZOLAM)(MIDAZOLAM) [Concomitant]

REACTIONS (5)
  - Dyskinesia [None]
  - Grand mal convulsion [None]
  - Depressed level of consciousness [None]
  - Agitation [None]
  - Aphasia [None]
